FAERS Safety Report 10237192 (Version 1)
Quarter: 2014Q1

REPORT INFORMATION
  Report Type: Spontaneous
  Country: US (occurrence: None)
  Receive Date: 20140306
  Receipt Date: 20140306
  Transmission Date: 20141002
  Serious: Yes (Other)
  Sender: FDA-Public Use
  Company Number: 163-21880-13103613

PATIENT
  Age: 76 Year
  Sex: Female

DRUGS (1)
  1. REVLIMID(LENALIDOMIDE)(10 MILLIGRAM, CAPSULES) [Suspect]
     Indication: MYELODYSPLASTIC SYNDROME
     Route: 048
     Dates: start: 20130913, end: 20130921

REACTIONS (4)
  - Dermatitis allergic [None]
  - Eye swelling [None]
  - Swelling face [None]
  - Rash [None]
